FAERS Safety Report 4852494-5 (Version None)
Quarter: 2005Q4

REPORT INFORMATION
  Report Type: 
  Country: None (occurrence: None)
  Receive Date: 20051213
  Receipt Date: 20051205
  Transmission Date: 20060501
  Serious: Yes (Hospitalization, Congenital Anomaly)
  Sender: FDA-Public Use
  Company Number: FR-AVENTIS-200513975FR

PATIENT
  Age: 32 Year
  Sex: Female

DRUGS (5)
  1. CLOMID [Suspect]
     Indication: OVULATION INDUCTION
     Route: 048
     Dates: start: 20041201, end: 20041201
  2. PENTASA [Suspect]
     Indication: CROHN'S DISEASE
     Route: 048
  3. SPECIAFOLDINE [Concomitant]
     Route: 048
     Dates: start: 20050112, end: 20050218
  4. INSULIN NOVO [Concomitant]
     Indication: DIABETES MELLITUS INSULIN-DEPENDENT
     Route: 058
  5. PENTASA [Concomitant]
     Route: 048

REACTIONS (4)
  - ABORTION INDUCED [None]
  - DRUG EXPOSURE BEFORE PREGNANCY [None]
  - DRUG EXPOSURE DURING PREGNANCY [None]
  - SPINA BIFIDA [None]
